FAERS Safety Report 7361909-2 (Version None)
Quarter: 2011Q1

REPORT INFORMATION
  Report Type: 
  Country: None (occurrence: None)
  Receive Date: 20110318
  Receipt Date: 20110311
  Transmission Date: 20110831
  Serious: Yes (Hospitalization)
  Sender: FDA-Public Use
  Company Number: GR-BRISTOL-MYERS SQUIBB COMPANY-15603277

PATIENT
  Age: 59 Year
  Sex: Female
  Weight: 91 kg

DRUGS (7)
  1. DEPON [Concomitant]
     Indication: PREMEDICATION
     Route: 048
     Dates: start: 20101011, end: 20101213
  2. ZANTAC [Concomitant]
     Indication: PREMEDICATION
     Dosage: INFUSION
     Route: 042
     Dates: start: 20101011, end: 20101213
  3. FENISTIL [Concomitant]
     Indication: PREMEDICATION
     Dosage: INFUSION
     Route: 042
     Dates: start: 20101011
  4. PACLITAXEL [Suspect]
     Indication: OVARIAN CANCER
     Dosage: LAST INFU:29NOV10
     Route: 042
     Dates: start: 20101011, end: 20101129
  5. ZOFRAN [Concomitant]
     Indication: PREMEDICATION
     Dosage: INFUSION
     Route: 042
     Dates: start: 20101011, end: 20101213
  6. CARBOPLATIN [Suspect]
     Indication: OVARIAN CANCER
     Route: 042
     Dates: start: 20101011, end: 20101129
  7. DECADRON [Concomitant]
     Indication: PREMEDICATION
     Dosage: INFUSION
     Route: 042
     Dates: start: 20101011

REACTIONS (3)
  - PULMONARY FIBROSIS [None]
  - THROMBOCYTOPENIA [None]
  - INTERSTITIAL LUNG DISEASE [None]
